FAERS Safety Report 9799180 (Version 1)
Quarter: 2014Q1

REPORT INFORMATION
  Report Type: Spontaneous
  Country: US (occurrence: None)
  Receive Date: 20140103
  Receipt Date: 20140103
  Transmission Date: 20141002
  Serious: Yes (Other)
  Sender: FDA-Public Use
  Company Number: None

PATIENT
  Age: 52 Year
  Sex: Female
  Weight: 58.97 kg

DRUGS (4)
  1. METRONIDAZOLE [Suspect]
     Indication: ENDODONTIC PROCEDURE
     Dosage: STRENGTH:500MG?QUANTITY:28?FREQUENCY:1 TAB, EVERY 6HOURS?HOW WAS IT TAKEN OR USED: DISSOLVED BEFORE I COULD SWALLOW IT. APPLESAUCE ON JC. DIDN^T HELP?
     Route: 048
     Dates: start: 20131105, end: 20131112
  2. PRAVASTATIN [Concomitant]
  3. PANTOPRAZOLE [Concomitant]
  4. ONE A DAY VIT [Concomitant]

REACTIONS (4)
  - Glossodynia [None]
  - Polyglandular disorder [None]
  - Oral discomfort [None]
  - Dysgeusia [None]
